FAERS Safety Report 8444321 (Version 4)
Quarter: 2012Q4

REPORT INFORMATION
  Report Type: 
  Country: US (occurrence: US)
  Receive Date: 20120307
  Receipt Date: 20120824
  Transmission Date: 20130627
  Serious: No
  Sender: FDA-Public Use
  Company Number: US-ELI_LILLY_AND_COMPANY-US201202007678

PATIENT
  Sex: Female
  Weight: 43.18 kg

DRUGS (7)
  1. FORTEO [Suspect]
     Indication: OSTEOPOROSIS
     Dosage: 20 ug, qd
     Route: 065
  2. FORTEO [Suspect]
     Dosage: 20 ug, qd
     Route: 065
  3. AMLODIPINE [Concomitant]
  4. LEFLUNOMIDE [Concomitant]
  5. PREDNISONE [Concomitant]
  6. HYDROCODONE W/PARACETAMOL [Concomitant]
  7. CALCIUM [Concomitant]

REACTIONS (3)
  - Pain in extremity [Unknown]
  - Arthralgia [Unknown]
  - Pain in extremity [Unknown]
